FAERS Safety Report 17823979 (Version 3)
Quarter: 2020Q3

REPORT INFORMATION
  Report Type: Spontaneous
  Country: FR (occurrence: FR)
  Receive Date: 20200526
  Receipt Date: 20200707
  Transmission Date: 20201102
  Serious: No
  Sender: FDA-Public Use
  Company Number: FR-BAYER-2020-088772

PATIENT
  Age: 43 Year
  Sex: Female

DRUGS (1)
  1. MIRENA [Suspect]
     Active Substance: LEVONORGESTREL
     Dosage: 20 ?G PER DAY, CONTINUOUSLY
     Route: 015
     Dates: start: 20141007, end: 20200313

REACTIONS (3)
  - Complication of device removal [Recovered/Resolved]
  - Device use issue [None]
  - Device physical property issue [Recovered/Resolved]

NARRATIVE: CASE EVENT DATE: 20200313
